FAERS Safety Report 6504415-7 (Version None)
Quarter: 2009Q4

REPORT INFORMATION
  Report Type: 
  Country: None (occurrence: None)
  Receive Date: 20091214
  Receipt Date: 20091130
  Transmission Date: 20100525
  Serious: Yes (Congenital Anomaly)
  Sender: FDA-Public Use
  Company Number: B0549014B

PATIENT
  Sex: Female

DRUGS (5)
  1. LAMICTAL [Suspect]
     Indication: EPILEPSY
     Dosage: TRANSPLACENTARY
     Route: 064
  2. CLOBAZAM TABLET (CLOBAZAM) [Suspect]
     Indication: EPILEPSY
     Dosage: TRANSPLACENTARY
     Route: 064
  3. TOPIRAMATE [Suspect]
     Indication: EPILEPSY
     Dosage: TRANSPLACENTARY
     Route: 064
  4. OXCARBAZEPINE TABLET (OXCARBAZEPINE) [Suspect]
     Indication: EPILEPSY
     Dosage: TRANSPLACENTARY
     Route: 064
  5. FOLIC ACID [Suspect]

REACTIONS (9)
  - ANOMALY OF EXTERNAL EAR CONGENITAL [None]
  - CONGENITAL ANOMALY [None]
  - DYSMORPHISM [None]
  - LARGE FOR DATES BABY [None]
  - LIMB MALFORMATION [None]
  - LOW SET EARS [None]
  - MATERNAL DRUGS AFFECTING FOETUS [None]
  - MICROTIA [None]
  - RETROGNATHIA [None]
